FAERS Safety Report 21809243 (Version 4)
Quarter: 2023Q1

REPORT INFORMATION
  Report Type: Report from Study
  Country: US (occurrence: US)
  Receive Date: 20230103
  Receipt Date: 20230222
  Transmission Date: 20230417
  Serious: Yes (Other)
  Sender: FDA-Public Use
  Company Number: US-MALLINCKRODT-T202206559

PATIENT
  Age: 63 Year
  Sex: Female

DRUGS (3)
  1. CORTICOTROPIN [Suspect]
     Active Substance: CORTICOTROPIN
     Indication: Nephrotic syndrome
     Dosage: UNK
     Route: 065
     Dates: start: 20221122
  2. CORTICOTROPIN [Suspect]
     Active Substance: CORTICOTROPIN
     Indication: Glomerulonephropathy
     Dosage: 40 UNITS ONCE A WEEK
     Route: 065
  3. CORTICOTROPIN [Suspect]
     Active Substance: CORTICOTROPIN
     Dosage: 80 UNITS ONCE A WEEK
     Route: 058
     Dates: start: 20221215

REACTIONS (4)
  - Carpal tunnel syndrome [Recovered/Resolved]
  - Diabetes mellitus [Not Recovered/Not Resolved]
  - Insomnia [Recovering/Resolving]
  - Product dose omission in error [Unknown]

NARRATIVE: CASE EVENT DATE: 20221206
